FAERS Safety Report 23802048 (Version 1)
Quarter: 2024Q2

REPORT INFORMATION
  Report Type: Spontaneous
  Country: US (occurrence: US)
  Receive Date: 20240501
  Receipt Date: 20240501
  Transmission Date: 20240716
  Serious: No
  Sender: FDA-Public Use
  Company Number: US-BoehringerIngelheim-2024-BI-024304

PATIENT

DRUGS (1)
  1. PRAMIPEXOLE [Suspect]
     Active Substance: PRAMIPEXOLE\PRAMIPEXOLE DIHYDROCHLORIDE
     Indication: Restless legs syndrome

REACTIONS (4)
  - Nuchal rigidity [Recovering/Resolving]
  - Muscle rigidity [Recovering/Resolving]
  - Walking distance test abnormal [Unknown]
  - Drug ineffective [Unknown]
